FAERS Safety Report 8556248-8 (Version None)
Quarter: 2012Q3

REPORT INFORMATION
  Report Type: 
  Country: None (occurrence: None)
  Receive Date: 20120801
  Receipt Date: 20120724
  Transmission Date: 20120928
  Serious: Yes (Other)
  Sender: FDA-Public Use
  Company Number: US-US-EMD SERONO, INC.-7150290

PATIENT
  Sex: Male

DRUGS (2)
  1. REBIF [Suspect]
     Indication: MULTIPLE SCLEROSIS
     Route: 058
     Dates: start: 20111118
  2. CELEXA [Concomitant]
     Indication: DEPRESSION

REACTIONS (5)
  - MUSCLE TIGHTNESS [None]
  - FEELING ABNORMAL [None]
  - DEPRESSION [None]
  - HEADACHE [None]
  - SUICIDE ATTEMPT [None]
